FAERS Safety Report 12093835 (Version 2)
Quarter: 2016Q1

REPORT INFORMATION
  Report Type: Report from Study
  Country: US (occurrence: US)
  Receive Date: 20160219
  Receipt Date: 20160302
  Transmission Date: 20160526
  Serious: Yes (Death, Hospitalization, Other)
  Sender: FDA-Public Use
  Company Number: US-ASTELLAS-2005001290

PATIENT
  Age: 56 Year
  Sex: Male

DRUGS (3)
  1. GEMCITABINE [Suspect]
     Active Substance: GEMCITABINE\GEMCITABINE HYDROCHLORIDE
     Indication: PANCREATIC CARCINOMA
     Dosage: 100 MG/M2, ON DAYS 1, 8 AND 15
     Route: 042
     Dates: start: 20041206, end: 20050627
  2. ERLOTINIB [Suspect]
     Active Substance: ERLOTINIB
     Indication: ADENOCARCINOMA PANCREAS
     Dosage: 150 MG ON DAYS 1-5, 8-12 AND 15-26.
     Route: 048
     Dates: start: 20041206, end: 20050630
  3. BEVACIZUMAB [Suspect]
     Active Substance: BEVACIZUMAB
     Indication: PANCREATIC CARCINOMA
     Dosage: 10 MG/KG, ON DAY 1 AND 15
     Route: 042
     Dates: start: 20041206, end: 20050627

REACTIONS (4)
  - Malignant neoplasm progression [Fatal]
  - Abdominal distension [Recovered/Resolved]
  - Ileus [Recovered/Resolved]
  - Ileus paralytic [Recovered/Resolved]

NARRATIVE: CASE EVENT DATE: 20050630
